FAERS Safety Report 25099045 (Version 1)
Quarter: 2025Q1

REPORT INFORMATION
  Report Type: Spontaneous
  Country: ES (occurrence: ES)
  Receive Date: 20250320
  Receipt Date: 20250320
  Transmission Date: 20250409
  Serious: Yes (Other)
  Sender: JOHNSON AND JOHNSON
  Company Number: ES-JNJFOC-20250345483

PATIENT
  Age: 6 Decade
  Sex: Female

DRUGS (1)
  1. SPRAVATO [Suspect]
     Active Substance: ESKETAMINE
     Indication: Major depression
     Route: 045
     Dates: start: 202302

REACTIONS (3)
  - Chronic kidney disease [Unknown]
  - Inflammatory bowel disease [Unknown]
  - Major depression [Unknown]

NARRATIVE: CASE EVENT DATE: 20240601
